FAERS Safety Report 25745174 (Version 1)
Quarter: 2025Q3

REPORT INFORMATION
  Report Type: Report from Study
  Country: CA (occurrence: CA)
  Receive Date: 20250901
  Receipt Date: 20250901
  Transmission Date: 20251021
  Serious: Yes (Hospitalization, Other)
  Sender: GILEAD
  Company Number: CA-GILEAD-2025-0726164

PATIENT
  Age: 35 Year
  Sex: Male

DRUGS (6)
  1. EMTRICITABINE\TENOFOVIR DISOPROXIL FUMARATE [Suspect]
     Active Substance: EMTRICITABINE\TENOFOVIR DISOPROXIL FUMARATE
     Indication: HIV infection
     Dosage: 1 TABLET BY MOUTH ONCE DAILY
     Route: 048
     Dates: start: 202411
  2. RIFABUTIN [Concomitant]
     Active Substance: RIFABUTIN
     Dates: start: 202411
  3. ISONIAZID [Concomitant]
     Active Substance: ISONIAZID
     Dates: start: 202411
  4. PYRIDOXINE [Concomitant]
     Active Substance: PYRIDOXINE
     Dates: start: 202411
  5. COTRIMOXAZOLE [Concomitant]
     Active Substance: SULFAMETHOXAZOLE\TRIMETHOPRIM
     Dates: start: 202411
  6. DOLUTEGRAVIR [Concomitant]
     Active Substance: DOLUTEGRAVIR
     Dates: start: 202411

REACTIONS (2)
  - Tuberculosis [Not Recovered/Not Resolved]
  - Product dose omission issue [Not Recovered/Not Resolved]

NARRATIVE: CASE EVENT DATE: 20250826
